FAERS Safety Report 15208680 (Version 1)
Quarter: 2018Q3

REPORT INFORMATION
  Report Type: Spontaneous
  Country: CA (occurrence: CA)
  Receive Date: 20180727
  Receipt Date: 20180727
  Transmission Date: 20181010
  Serious: Yes (Death, Hospitalization)
  Sender: FDA-Public Use
  Company Number: CA-CELGENEUS-CAN-20171004063

PATIENT
  Age: 71 Year
  Sex: Male

DRUGS (4)
  1. CEFIXIME. [Concomitant]
     Active Substance: CEFIXIME
     Indication: ESCHERICHIA URINARY TRACT INFECTION
     Dosage: 400 MILLIGRAM
     Route: 048
     Dates: start: 20171012, end: 20171022
  2. DEXAMETHASONE ORAL [Suspect]
     Active Substance: DEXAMETHASONE
     Indication: PLASMA CELL MYELOMA
     Dosage: 40 MILLIGRAM
     Route: 048
     Dates: start: 20170607, end: 20170823
  3. ELOTUZUMAB. [Concomitant]
     Active Substance: ELOTUZUMAB
     Indication: PLASMA CELL MYELOMA
     Route: 065
  4. POMALYST [Suspect]
     Active Substance: POMALIDOMIDE
     Indication: PLASMA CELL MYELOMA
     Dosage: 4 MILLIGRAM
     Route: 048
     Dates: start: 20170607, end: 20170822

REACTIONS (2)
  - Escherichia urinary tract infection [Recovered/Resolved]
  - Rhinovirus infection [Fatal]

NARRATIVE: CASE EVENT DATE: 20171011
